FAERS Safety Report 8457501-9 (Version None)
Quarter: 2012Q2

REPORT INFORMATION
  Report Type: 
  Country: None (occurrence: None)
  Receive Date: 20120622
  Receipt Date: 20120619
  Transmission Date: 20120825
  Serious: Yes (Hospitalization, Other)
  Sender: FDA-Public Use
  Company Number: US-AMGEN-USASP2012037980

PATIENT
  Age: 65 Year
  Sex: Female

DRUGS (4)
  1. ENBREL [Suspect]
     Indication: PSORIASIS
  2. METHOTREXATE [Concomitant]
     Dosage: UNK
  3. ENBREL [Suspect]
     Indication: PSORIATIC ARTHROPATHY
     Dosage: 50 MG, QWK
     Dates: start: 20060731
  4. PREDNISONE TAB [Concomitant]
     Dosage: UNK

REACTIONS (4)
  - TYPE 2 DIABETES MELLITUS [None]
  - PSORIATIC ARTHROPATHY [None]
  - PSORIASIS [None]
  - BASAL CELL CARCINOMA [None]
